FAERS Safety Report 6389766-1 (Version None)
Quarter: 2009Q4

REPORT INFORMATION
  Report Type: 
  Country: None (occurrence: None)
  Receive Date: 20091006
  Receipt Date: 20090924
  Transmission Date: 20100525
  Serious: Yes (Other)
  Sender: FDA-Public Use
  Company Number: US-PFIZER INC-2009275361

PATIENT
  Sex: Female
  Weight: 36.74 kg

DRUGS (1)
  1. AZITHROMYCIN [Suspect]
     Indication: SINUSITIS
     Dosage: UNK MG/ML, 1X/DAY
     Route: 048
     Dates: start: 20090922, end: 20090923

REACTIONS (3)
  - AMNESIA [None]
  - COUGH [None]
  - DISTURBANCE IN ATTENTION [None]
